FAERS Safety Report 25185469 (Version 1)
Quarter: 2025Q2

REPORT INFORMATION
  Report Type: Spontaneous
  Country: US (occurrence: US)
  Receive Date: 20250410
  Receipt Date: 20250410
  Transmission Date: 20250717
  Serious: No
  Sender: HISAMITSU PHARM
  Company Number: US-HISAMITSU-2024-US-033532

PATIENT
  Age: 78 Year
  Sex: Female
  Weight: 68.04 kg

DRUGS (1)
  1. SALONPAS ARTHRITIS PAIN [Suspect]
     Active Substance: MENTHOL\METHYL SALICYLATE
     Indication: Analgesic therapy
     Dates: start: 20240612, end: 20240613

REACTIONS (2)
  - Heart rate increased [Recovered/Resolved]
  - Palpitations [Recovered/Resolved]

NARRATIVE: CASE EVENT DATE: 20240613
